FAERS Safety Report 14373080 (Version 1)
Quarter: 2018Q1

REPORT INFORMATION
  Report Type: Report from Study
  Country: CZ (occurrence: CZ)
  Receive Date: 20180110
  Receipt Date: 20180110
  Transmission Date: 20180509
  Serious: Yes (Other)
  Sender: FDA-Public Use
  Company Number: CZ-BAYER-2017-137766

PATIENT
  Age: 39 Year
  Sex: Female
  Weight: 58 kg

DRUGS (4)
  1. MIRENA [Suspect]
     Active Substance: LEVONORGESTREL
     Indication: CONTRACEPTION
     Dosage: 20 MCG/24HR, CONT
     Route: 015
     Dates: start: 20170403, end: 2017
  2. MIRENA [Suspect]
     Active Substance: LEVONORGESTREL
     Indication: CONTRACEPTION
     Dosage: 20 MCG/24HR, CONT
  3. MIRENA [Suspect]
     Active Substance: LEVONORGESTREL
     Indication: CONTRACEPTION
     Dosage: 20 MCG/24HR, CONT
  4. MIRENA [Suspect]
     Active Substance: LEVONORGESTREL

REACTIONS (5)
  - Pregnancy with contraceptive device [Recovered/Resolved]
  - Device expulsion [Recovered/Resolved]
  - Amenorrhoea [None]
  - Abortion induced [None]
  - Drug ineffective [None]

NARRATIVE: CASE EVENT DATE: 2017
